FAERS Safety Report 8170817-9 (Version None)
Quarter: 2012Q1

REPORT INFORMATION
  Report Type: 
  Country: None (occurrence: None)
  Receive Date: 20120228
  Receipt Date: 20120217
  Transmission Date: 20120608
  Serious: Yes (Hospitalization, Other)
  Sender: FDA-Public Use
  Company Number: GB-ROCHE-1041564

PATIENT
  Sex: Female

DRUGS (2)
  1. MABTHERA [Suspect]
     Indication: PRODUCT USED FOR UNKNOWN INDICATION
     Route: 065
     Dates: start: 20091105, end: 20110124
  2. METHOTREXATE [Concomitant]

REACTIONS (4)
  - ACROCHORDON EXCISION [None]
  - PRURITUS [None]
  - BIOPSY BREAST [None]
  - BREAST DISCHARGE [None]
